FAERS Safety Report 15498246 (Version 1)
Quarter: 2018Q4

REPORT INFORMATION
  Report Type: Spontaneous
  Country: US (occurrence: US)
  Receive Date: 20181015
  Receipt Date: 20181015
  Transmission Date: 20190205
  Serious: Yes (Other)
  Sender: FDA-Public Use
  Company Number: None

PATIENT
  Sex: Male

DRUGS (4)
  1. TACROLIMUS. [Suspect]
     Active Substance: TACROLIMUS
     Indication: LUNG TRANSPLANT
     Dosage: ?          OTHER FREQUENCY:Q 12 HOURS;?
     Route: 048
     Dates: start: 20180417
  2. IMIQUIMOD, PREDNISONE [Concomitant]
  3. PROPRANOLOL, PROTONIX [Concomitant]
  4. SMZ-TMP, VALCYTE [Concomitant]

REACTIONS (1)
  - Skin cancer [None]
